FAERS Safety Report 10009874 (Version 2)
Quarter: 2014Q1

REPORT INFORMATION
  Report Type: Spontaneous
  Country: US (occurrence: US)
  Receive Date: 20140312
  Receipt Date: 20140312
  Transmission Date: 20141002
  Serious: No
  Sender: FDA-Public Use
  Company Number: US-INCYTE CORPORATION-2013IN000214

PATIENT
  Age: 71 Year
  Sex: Male

DRUGS (13)
  1. JAKAFI [Suspect]
     Indication: MYELOFIBROSIS
     Dosage: 15 MG, BID
     Route: 048
     Dates: start: 20130107, end: 20130130
  2. JAKAFI [Suspect]
     Dosage: 7.5 MG, BID
     Route: 048
     Dates: start: 20130130
  3. JAKAFI [Suspect]
     Dosage: 5 MG, BID
     Route: 048
  4. OXYCONTIN [Concomitant]
  5. ASPIRIN [Concomitant]
     Dosage: 81 MG, UNK
  6. METFORMIN [Concomitant]
  7. LEVOTHYROXINE [Concomitant]
  8. PROTONIX [Concomitant]
  9. OXYCODONE [Concomitant]
  10. KLONOPIN [Concomitant]
  11. HYDROXYUREA [Concomitant]
  12. AMICAR [Concomitant]
  13. PROVIGIL [Concomitant]

REACTIONS (6)
  - Anaemia [Recovering/Resolving]
  - Platelet count decreased [Unknown]
  - Splenomegaly [Recovering/Resolving]
  - Weight decreased [Unknown]
  - Decreased appetite [Unknown]
  - Wrong technique in drug usage process [Unknown]
